FAERS Safety Report 5630553-7 (Version None)
Quarter: 2008Q1

REPORT INFORMATION
  Report Type: 
  Country: None (occurrence: None)
  Receive Date: 20080219
  Receipt Date: 20080205
  Transmission Date: 20080703
  Serious: Yes (Hospitalization, Disabling, Congenital Anomaly)
  Sender: FDA-Public Use
  Company Number: A0639383A

PATIENT
  Sex: Female
  Weight: 3.5 kg

DRUGS (21)
  1. PAXIL [Suspect]
     Indication: ANXIETY
     Dosage: 20MG PER DAY
     Dates: start: 19990101, end: 20020701
  2. IBUPROFEN [Concomitant]
     Dates: start: 19880101
  3. ACETAMINOPHEN [Concomitant]
     Dates: start: 19880101
  4. GUAIFEN [Concomitant]
     Dates: start: 19880101
  5. DEXCHLORPHENIRAMINE [Concomitant]
     Dates: start: 19880101
  6. FLONASE [Concomitant]
     Dosage: 2SPR PER DAY
  7. NASACORT [Concomitant]
     Dosage: 2SPR PER DAY
  8. NASONEX [Concomitant]
     Dosage: 2SPR PER DAY
  9. ASTELIN [Concomitant]
     Dosage: 2SPR PER DAY
  10. ZYRTEC [Concomitant]
  11. AZMACORT [Concomitant]
     Dates: start: 19960101
  12. ADVAIR DISKUS 100/50 [Concomitant]
  13. ALBUTEROL [Concomitant]
     Dosage: 2PUFF AS REQUIRED
     Dates: start: 19960101
  14. BUSPAR [Concomitant]
     Dates: start: 19990101, end: 20010205
  15. MULTI-VITAMIN [Concomitant]
  16. FOLIC ACID [Concomitant]
  17. PRENATAL VITAMINS [Concomitant]
  18. LEXAPRO [Concomitant]
  19. ATIVAN [Concomitant]
  20. CLARITIN [Concomitant]
  21. PROZAC [Concomitant]

REACTIONS (26)
  - ATRIAL SEPTAL DEFECT [None]
  - BUNDLE BRANCH BLOCK RIGHT [None]
  - CARDIAC FAILURE CONGESTIVE [None]
  - CARDIAC MURMUR [None]
  - CARDIOMEGALY [None]
  - CONGENITAL HAIR DISORDER [None]
  - CONGENITAL HEART VALVE DISORDER [None]
  - CYANOSIS [None]
  - DEFORMITY THORAX [None]
  - DILATATION ATRIAL [None]
  - DILATATION VENTRICULAR [None]
  - DRUG EXPOSURE DURING PREGNANCY [None]
  - ELECTROCARDIOGRAM QT PROLONGED [None]
  - EMOTIONAL DISTRESS [None]
  - FOETAL HEART RATE ABNORMAL [None]
  - HEPATOMEGALY [None]
  - HYPERHIDROSIS [None]
  - MITRAL VALVE INCOMPETENCE [None]
  - MULTIPLE CONGENITAL ABNORMALITIES [None]
  - PAIN [None]
  - PLEURAL EFFUSION [None]
  - PTERYGIUM COLLI [None]
  - TACHYPNOEA [None]
  - TRICUSPID VALVE INCOMPETENCE [None]
  - TURNER'S SYNDROME [None]
  - VENTRICULAR SEPTAL DEFECT [None]
